FAERS Safety Report 14948363 (Version 1)
Quarter: 2018Q2

REPORT INFORMATION
  Report Type: Spontaneous
  Country: US (occurrence: US)
  Receive Date: 20180529
  Receipt Date: 20180529
  Transmission Date: 20180711
  Serious: No
  Sender: FDA-Public Use
  Company Number: US-KERYX BIOPHARMACEUTICALS INC.-2017US003300

PATIENT
  Age: 77 Year
  Sex: Female

DRUGS (15)
  1. AURYXIA [Suspect]
     Active Substance: TETRAFERRIC TRICITRATE DECAHYDRATE
     Indication: HYPERPHOSPHATAEMIA
     Dosage: 1 G (1 TABLET), BID WITH LARGEST MEALS
     Route: 048
     Dates: start: 20170914, end: 20170926
  2. ARANESP [Concomitant]
     Active Substance: DARBEPOETIN ALFA
     Dosage: 40 MICRO-G, QMO
     Route: 058
     Dates: start: 20170810, end: 20170914
  3. CALCITRIOL. [Concomitant]
     Active Substance: CALCITRIOL
     Dosage: 0.25 MICRO-G, QOD
     Route: 048
     Dates: start: 20170725
  4. GLUCOSAMINE [Concomitant]
     Active Substance: GLUCOSAMINE
     Dosage: 500 MG, BID
     Route: 048
     Dates: start: 20170811
  5. SENSIPAR [Concomitant]
     Active Substance: CINACALCET HYDROCHLORIDE
     Dosage: 30 MG, QD
     Route: 048
     Dates: start: 20170725
  6. ASA [Concomitant]
     Active Substance: ASPIRIN
     Dosage: 81 MG, QD
     Route: 048
     Dates: start: 20161012
  7. AURYXIA [Suspect]
     Active Substance: TETRAFERRIC TRICITRATE DECAHYDRATE
     Dosage: 1 G (1 TABLET), QD
     Route: 048
     Dates: start: 20170811, end: 20170914
  8. ROSUVASTATIN. [Concomitant]
     Active Substance: ROSUVASTATIN
     Dosage: 20 MG, QHS
     Route: 048
     Dates: start: 20161012
  9. CEPHALEXIN. [Concomitant]
     Active Substance: CEPHALEXIN
     Dosage: 250 MG, QD
     Route: 048
     Dates: start: 20161012
  10. ERGOCALCIFEROL. [Concomitant]
     Active Substance: ERGOCALCIFEROL
     Dosage: 50000 IU, 2 TIMES A MONTH
     Route: 048
     Dates: start: 20170608
  11. NITROGLYCERIN. [Concomitant]
     Active Substance: NITROGLYCERIN
     Dosage: 0.4 MG, 3 TIMES PRN, AS DIRECTED
     Route: 060
     Dates: start: 20161012
  12. SPIRONOLACTONE. [Concomitant]
     Active Substance: SPIRONOLACTONE
     Dosage: 12.5 MG, QOD
     Route: 048
     Dates: start: 20170504
  13. TRAMADOL. [Concomitant]
     Active Substance: TRAMADOL
     Indication: PAIN
     Dosage: 25 MG, 1 TO 2 TIMES A DAY PRN
     Route: 048
     Dates: start: 20161012
  14. HUMULIN 70/30 KWIKPEN [Concomitant]
     Active Substance: INSULIN HUMAN
     Dosage: 15 UNIT, QD
     Route: 058
     Dates: start: 20170608, end: 20170914
  15. CARVEDILOL. [Concomitant]
     Active Substance: CARVEDILOL
     Dosage: 3.125 MG, QD (1/2 OF 3.125 MG TABLET QAM)
     Route: 048
     Dates: start: 20170504

REACTIONS (1)
  - Diarrhoea [Recovered/Resolved]

NARRATIVE: CASE EVENT DATE: 20170920
